FAERS Safety Report 8325454-X (Version None)
Quarter: 2012Q2

REPORT INFORMATION
  Report Type: 
  Country: None (occurrence: None)
  Receive Date: 20120427
  Receipt Date: 20120420
  Transmission Date: 20120825
  Serious: Yes (Hospitalization)
  Sender: FDA-Public Use
  Company Number: WAES 1204USA02997

PATIENT
  Age: 53 Year
  Sex: Male

DRUGS (12)
  1. ASPIRIN [Concomitant]
  2. DIAMICRON [Concomitant]
  3. METOPROLOL TARTRATE [Suspect]
     Indication: PRODUCT USED FOR UNKNOWN INDICATION
  4. CADUET [Concomitant]
  5. AVALIDE [Concomitant]
  6. LEVEMIR [Suspect]
     Indication: PRODUCT USED FOR UNKNOWN INDICATION
  7. BLINDED THERAPY [Suspect]
     Indication: RENAL CELL CARCINOMA
     Dates: start: 20091216
  8. LISINOPRIL [Concomitant]
  9. BLINDED THERAPY [Suspect]
     Indication: RENAL CELL CARCINOMA
     Dosage: UNK;UNK
     Dates: start: 20091216
  10. AVANDAMET [Suspect]
     Indication: PRODUCT USED FOR UNKNOWN INDICATION
  11. SITAGLIPTIN PHOSPHATE [Suspect]
     Indication: PRODUCT USED FOR UNKNOWN INDICATION
     Dosage: PO
     Route: 048
  12. GLICLAZIDE [Suspect]
     Indication: PRODUCT USED FOR UNKNOWN INDICATION

REACTIONS (5)
  - HYPOGLYCAEMIA [None]
  - ANION GAP INCREASED [None]
  - ALCOHOL USE [None]
  - VOMITING PROJECTILE [None]
  - METABOLIC ACIDOSIS [None]
